FAERS Safety Report 7915547-0 (Version None)
Quarter: 2011Q4

REPORT INFORMATION
  Report Type: 
  Country: None (occurrence: None)
  Receive Date: 20111115
  Receipt Date: 20110823
  Transmission Date: 20120403
  Serious: No
  Sender: FDA-Public Use
  Company Number: US-BRISTOL-MYERS SQUIBB COMPANY-15993900

PATIENT
  Age: 41 Year
  Sex: Male

DRUGS (1)
  1. YERVOY [Suspect]
     Dosage: 4TH INFUSION ON 23AUG2011 HIS 2ND INFUSION OF 3MG/KG
     Dates: end: 20110823

REACTIONS (1)
  - SKIN DISCOLOURATION [None]
